FAERS Safety Report 12787286 (Version 2)
Quarter: 2016Q4

REPORT INFORMATION
  Report Type: Report from Study
  Country: US (occurrence: US)
  Receive Date: 20160927
  Receipt Date: 20161230
  Transmission Date: 20170207
  Serious: No
  Sender: FDA-Public Use
  Company Number: US-AMGEN-USASL2016129025

PATIENT
  Age: 61 Year
  Sex: Male

DRUGS (22)
  1. PHENERGAN [Concomitant]
     Active Substance: PROMETHAZINE HYDROCHLORIDE
  2. GABAPENTIN. [Suspect]
     Active Substance: GABAPENTIN
     Indication: SWELLING
  3. MORPHINE [Concomitant]
     Active Substance: MORPHINE
     Indication: PAIN
  4. PERCOCET [Concomitant]
     Active Substance: ACETAMINOPHEN\OXYCODONE HYDROCHLORIDE
     Indication: SWELLING
  5. ALPRAZOLAM. [Concomitant]
     Active Substance: ALPRAZOLAM
     Dosage: UNK
  6. MEMANTINE. [Concomitant]
     Active Substance: MEMANTINE
  7. GABAPENTIN. [Suspect]
     Active Substance: GABAPENTIN
     Indication: PARAESTHESIA
  8. FLOMAX [Concomitant]
     Active Substance: TAMSULOSIN HYDROCHLORIDE
  9. PREDNISONE. [Concomitant]
     Active Substance: PREDNISONE
  10. BUSPIRONE [Concomitant]
     Active Substance: BUSPIRONE HYDROCHLORIDE
  11. GABAPENTIN. [Suspect]
     Active Substance: GABAPENTIN
     Indication: HYPOAESTHESIA
     Dosage: 600 MG, QD
     Route: 065
     Dates: start: 201606
  12. SUCRALFATE. [Concomitant]
     Active Substance: SUCRALFATE
  13. ZOFRAN [Concomitant]
     Active Substance: ONDANSETRON HYDROCHLORIDE
     Dosage: UNK
  14. PROTONIX [Concomitant]
     Active Substance: PANTOPRAZOLE SODIUM
  15. MORPHINE [Concomitant]
     Active Substance: MORPHINE
     Indication: SWELLING
  16. PERCOCET [Concomitant]
     Active Substance: ACETAMINOPHEN\OXYCODONE HYDROCHLORIDE
     Indication: PAIN
  17. VENLAFAXINE [Concomitant]
     Active Substance: VENLAFAXINE HYDROCHLORIDE
  18. LEFLUNOMIDE. [Concomitant]
     Active Substance: LEFLUNOMIDE
  19. MODAFINIL. [Concomitant]
     Active Substance: MODAFINIL
  20. ENBREL [Suspect]
     Active Substance: ETANERCEPT
     Indication: RHEUMATOID ARTHRITIS
     Dosage: 50 MG, QWK
     Route: 058
     Dates: start: 201603, end: 201609
  21. GABAPENTIN. [Suspect]
     Active Substance: GABAPENTIN
     Indication: PAIN
  22. ARMODAFINIL. [Concomitant]
     Active Substance: ARMODAFINIL
     Dosage: UNK

REACTIONS (12)
  - Injection site bruising [Unknown]
  - Drug ineffective [Unknown]
  - Pain [Unknown]
  - Hypoaesthesia [Unknown]
  - Fall [Unknown]
  - Pain in extremity [Unknown]
  - Memory impairment [Unknown]
  - Injection site pain [Unknown]
  - Swelling [Unknown]
  - Peripheral swelling [Unknown]
  - Muscular weakness [Unknown]
  - Paraesthesia [Unknown]

NARRATIVE: CASE EVENT DATE: 2016
